FAERS Safety Report 15012035 (Version 10)
Quarter: 2018Q3

REPORT INFORMATION
  Report Type: Report from Study
  Country: DE (occurrence: DE)
  Receive Date: 20180614
  Receipt Date: 20180731
  Transmission Date: 20181010
  Serious: Yes (Hospitalization, Other)
  Sender: FDA-Public Use
  Company Number: PHHY2018DE021012

PATIENT
  Sex: Female
  Weight: 49 kg

DRUGS (119)
  1. OXALIPLATIN. [Suspect]
     Active Substance: OXALIPLATIN
     Dosage: 135 MG, UNK
     Route: 042
     Dates: start: 20170330, end: 20170330
  2. FLUOROURACIL. [Suspect]
     Active Substance: FLUOROURACIL
     Dosage: 3816 MG, UNK
     Route: 042
     Dates: start: 20170302, end: 20170304
  3. FLUOROURACIL. [Suspect]
     Active Substance: FLUOROURACIL
     Dosage: 636 MG, UNK
     Route: 042
     Dates: start: 20170511, end: 20170511
  4. FLUOROURACIL. [Suspect]
     Active Substance: FLUOROURACIL
     Dosage: 3816 MG, UNK
     Route: 042
     Dates: start: 20170711, end: 20170713
  5. FLUOROURACIL. [Suspect]
     Active Substance: FLUOROURACIL
     Dosage: 3816 MG,UNK
     Route: 042
     Dates: start: 20171101, end: 20171103
  6. FLUOROURACIL. [Suspect]
     Active Substance: FLUOROURACIL
     Dosage: 3816 MG,UNK
     Route: 042
     Dates: start: 20180322, end: 20180324
  7. FOLINIC ACID [Suspect]
     Active Substance: LEUCOVORIN
     Dosage: 636 MG, UNK
     Route: 042
     Dates: start: 20170627, end: 20170627
  8. FOLINIC ACID [Suspect]
     Active Substance: LEUCOVORIN
     Dosage: 636 MG,UNK
     Route: 042
     Dates: start: 20180322, end: 20180322
  9. CLEXANE [Suspect]
     Active Substance: ENOXAPARIN SODIUM
     Indication: PRODUCT USED FOR UNKNOWN INDICATION
     Dosage: UNK UNK, UNK
     Route: 065
  10. BLINDED THERAPY [Suspect]
     Active Substance: INVESTIGATIONAL PRODUCT
     Dosage: 800 MG, UNK
     Route: 042
     Dates: start: 20180208, end: 20180208
  11. BLINDED THERAPY [Suspect]
     Active Substance: INVESTIGATIONAL PRODUCT
     Dosage: 800 MG, UNK
     Route: 042
     Dates: start: 20180308, end: 20180308
  12. LYRICA [Concomitant]
     Active Substance: PREGABALIN
     Indication: PRODUCT USED FOR UNKNOWN INDICATION
     Dosage: UNK
     Route: 065
     Dates: start: 20180110
  13. OXALIPLATIN. [Suspect]
     Active Substance: OXALIPLATIN
     Indication: ADENOCARCINOMA GASTRIC
     Dosage: 135 MG, UNK
     Route: 042
     Dates: start: 20170302, end: 20170302
  14. OXALIPLATIN. [Suspect]
     Active Substance: OXALIPLATIN
     Dosage: 135 MG, UNK
     Route: 042
     Dates: start: 20170530, end: 20170530
  15. FLUOROURACIL. [Suspect]
     Active Substance: FLUOROURACIL
     Dosage: 636 MG, UNK
     Route: 042
     Dates: start: 20170711, end: 20170711
  16. FLUOROURACIL. [Suspect]
     Active Substance: FLUOROURACIL
     Dosage: 3816 MG, UNK
     Route: 042
     Dates: start: 20170725, end: 20170725
  17. FLUOROURACIL. [Suspect]
     Active Substance: FLUOROURACIL
     Dosage: 3816 MG,UNK
     Route: 042
     Dates: start: 20170919, end: 20170921
  18. FLUOROURACIL. [Suspect]
     Active Substance: FLUOROURACIL
     Dosage: 3816 MG,UNK
     Route: 042
     Dates: start: 20171004, end: 20171006
  19. FLUOROURACIL. [Suspect]
     Active Substance: FLUOROURACIL
     Dosage: 636 MG,UNK
     Route: 042
     Dates: start: 20171114, end: 20171114
  20. FOLINIC ACID [Suspect]
     Active Substance: LEUCOVORIN
     Indication: ADENOCARCINOMA GASTRIC
     Dosage: 636 MG, UNK
     Route: 042
     Dates: start: 20170302, end: 20170302
  21. FOLINIC ACID [Suspect]
     Active Substance: LEUCOVORIN
     Indication: ADENOCARCINOMA GASTRIC
     Dosage: 636 MG, UNK
     Route: 042
     Dates: start: 20170316, end: 20170316
  22. FOLINIC ACID [Suspect]
     Active Substance: LEUCOVORIN
     Dosage: 636 MG, UNK
     Route: 042
     Dates: start: 20170330, end: 20170330
  23. FOLINIC ACID [Suspect]
     Active Substance: LEUCOVORIN
     Dosage: 636 MG, UNK
     Route: 042
     Dates: start: 20170413, end: 20170413
  24. FOLINIC ACID [Suspect]
     Active Substance: LEUCOVORIN
     Dosage: 636 MG, UNK
     Route: 042
     Dates: start: 20170613, end: 20170613
  25. FOLINIC ACID [Suspect]
     Active Substance: LEUCOVORIN
     Dosage: 636 MG, UNK
     Route: 042
     Dates: start: 20170822, end: 20170822
  26. FOLINIC ACID [Suspect]
     Active Substance: LEUCOVORIN
     Dosage: 636 MG,UNK
     Route: 042
     Dates: start: 20180125, end: 20180125
  27. TRAMAL [Suspect]
     Active Substance: TRAMADOL
     Indication: PRODUCT USED FOR UNKNOWN INDICATION
     Route: 065
  28. BLINDED THERAPY [Suspect]
     Active Substance: INVESTIGATIONAL PRODUCT
     Indication: ADENOCARCINOMA GASTRIC
     Dosage: 800 MG, UNK
     Route: 042
     Dates: start: 20170413, end: 20170413
  29. BLINDED THERAPY [Suspect]
     Active Substance: INVESTIGATIONAL PRODUCT
     Dosage: 800 MG, UNK
     Route: 042
     Dates: start: 20170725, end: 20170725
  30. BLINDED THERAPY [Suspect]
     Active Substance: INVESTIGATIONAL PRODUCT
     Dosage: 800 MG, UNK
     Route: 042
     Dates: start: 20170822, end: 20170822
  31. BLINDED THERAPY [Suspect]
     Active Substance: INVESTIGATIONAL PRODUCT
     Dosage: 800 MG, UNK
     Route: 042
     Dates: start: 20170530, end: 20170530
  32. BLINDED THERAPY [Suspect]
     Active Substance: INVESTIGATIONAL PRODUCT
     Dosage: 800 MG, UNK
     Route: 042
     Dates: start: 20180125, end: 20180125
  33. RINGERS SOLUTION [Concomitant]
     Active Substance: CALCIUM CHLORIDE\POTASSIUM CHLORIDE\SODIUM CHLORIDE
     Indication: PRODUCT USED FOR UNKNOWN INDICATION
     Dosage: UNK
     Route: 065
     Dates: start: 20180406, end: 20180406
  34. PANTOPRAZOLE [Concomitant]
     Active Substance: PANTOPRAZOLE
     Indication: PRODUCT USED FOR UNKNOWN INDICATION
     Dosage: UNK
     Route: 065
     Dates: start: 20170215
  35. OXALIPLATIN. [Suspect]
     Active Substance: OXALIPLATIN
     Dosage: 135 MG, UNK
     Route: 042
     Dates: start: 20170511, end: 20170511
  36. FLUOROURACIL. [Suspect]
     Active Substance: FLUOROURACIL
     Dosage: 636 MG, UNK
     Route: 042
     Dates: start: 20170413, end: 20170413
  37. FLUOROURACIL. [Suspect]
     Active Substance: FLUOROURACIL
     Dosage: 3816 MG, UNK
     Route: 042
     Dates: start: 20170627, end: 20170629
  38. FLUOROURACIL. [Suspect]
     Active Substance: FLUOROURACIL
     Dosage: 636 MG, UNK
     Route: 042
     Dates: start: 20170822, end: 20170822
  39. FLUOROURACIL. [Suspect]
     Active Substance: FLUOROURACIL
     Dosage: 3816 MG,UNK
     Route: 042
     Dates: start: 20180308, end: 20180310
  40. FOLINIC ACID [Suspect]
     Active Substance: LEUCOVORIN
     Dosage: 636 MG, UNK
     Route: 042
     Dates: start: 20170725, end: 20170725
  41. FOLINIC ACID [Suspect]
     Active Substance: LEUCOVORIN
     Dosage: 636 MG, UNK
     Route: 042
     Dates: start: 20170808, end: 20170808
  42. FOLINIC ACID [Suspect]
     Active Substance: LEUCOVORIN
     Dosage: 636 MG, UNK
     Route: 042
     Dates: start: 20170919, end: 20170919
  43. FOLINIC ACID [Suspect]
     Active Substance: LEUCOVORIN
     Dosage: 636 MG, UNK
     Route: 042
     Dates: start: 20171004, end: 20171004
  44. FOLINIC ACID [Suspect]
     Active Substance: LEUCOVORIN
     Dosage: 636 MG,UNK
     Route: 042
     Dates: start: 20171101, end: 20171101
  45. FOLINIC ACID [Suspect]
     Active Substance: LEUCOVORIN
     Dosage: 636 MGUNK
     Route: 042
     Dates: start: 20171114, end: 20171114
  46. FOLINIC ACID [Suspect]
     Active Substance: LEUCOVORIN
     Dosage: 636 MG,UNK
     Route: 042
     Dates: start: 20180222, end: 20180222
  47. NOVAMINSULFON [Suspect]
     Active Substance: METAMIZOLE
     Indication: ABDOMINAL PAIN UPPER
     Dosage: UNK
     Route: 042
     Dates: start: 20180109
  48. BLINDED THERAPY [Suspect]
     Active Substance: INVESTIGATIONAL PRODUCT
     Dosage: 800 MG, UNK
     Route: 042
     Dates: start: 20171004, end: 20171004
  49. MAGNESIUM HYDROXIDE. [Concomitant]
     Active Substance: MAGNESIUM HYDROXIDE
     Indication: PRODUCT USED FOR UNKNOWN INDICATION
     Dosage: UNK
     Route: 065
     Dates: start: 19980101
  50. FLUOROURACIL. [Suspect]
     Active Substance: FLUOROURACIL
     Dosage: 636 MG, UNK
     Route: 042
     Dates: start: 20170316, end: 20170316
  51. FLUOROURACIL. [Suspect]
     Active Substance: FLUOROURACIL
     Dosage: 3816 MG, UNK
     Route: 042
     Dates: start: 20170613, end: 20170615
  52. FLUOROURACIL. [Suspect]
     Active Substance: FLUOROURACIL
     Dosage: 636 MG, UNK
     Route: 042
     Dates: start: 20170627, end: 20170627
  53. FLUOROURACIL. [Suspect]
     Active Substance: FLUOROURACIL
     Dosage: 3816 MG, UNK
     Route: 042
     Dates: start: 20170822, end: 20170824
  54. FLUOROURACIL. [Suspect]
     Active Substance: FLUOROURACIL
     Dosage: 636 MG,UNK
     Route: 042
     Dates: start: 20171128, end: 20171128
  55. FLUOROURACIL. [Suspect]
     Active Substance: FLUOROURACIL
     Dosage: 3816 MG,UNK
     Route: 042
     Dates: start: 20180222, end: 20180224
  56. FOLINIC ACID [Suspect]
     Active Substance: LEUCOVORIN
     Dosage: 636 MG,UNK
     Route: 042
     Dates: start: 20180208, end: 20180208
  57. BLINDED THERAPY [Suspect]
     Active Substance: INVESTIGATIONAL PRODUCT
     Dosage: 800 MG, UNK
     Route: 042
     Dates: start: 20170627, end: 20170627
  58. BLINDED THERAPY [Suspect]
     Active Substance: INVESTIGATIONAL PRODUCT
     Dosage: 800 MG, UNK
     Route: 042
     Dates: start: 20170711, end: 20170711
  59. BLINDED THERAPY [Suspect]
     Active Substance: INVESTIGATIONAL PRODUCT
     Dosage: 800 MG, UNK
     Route: 042
     Dates: start: 20170316, end: 20170316
  60. BLINDED THERAPY [Suspect]
     Active Substance: INVESTIGATIONAL PRODUCT
     Dosage: 800 MG, UNK
     Route: 042
     Dates: start: 20170302, end: 20170302
  61. METOCLOPRAMID [Concomitant]
     Active Substance: METOCLOPRAMIDE
     Indication: PRODUCT USED FOR UNKNOWN INDICATION
     Dosage: UNK
     Route: 065
     Dates: start: 20180110
  62. OXALIPLATIN. [Suspect]
     Active Substance: OXALIPLATIN
     Dosage: 135 MG, UNK
     Route: 042
     Dates: start: 20170613, end: 20170613
  63. OXALIPLATIN. [Suspect]
     Active Substance: OXALIPLATIN
     Dosage: 135 MG, UNK
     Route: 042
     Dates: start: 20170627, end: 20170627
  64. OXALIPLATIN. [Suspect]
     Active Substance: OXALIPLATIN
     Dosage: 135 MG, UNK
     Route: 042
     Dates: start: 20170711, end: 20170711
  65. FLUOROURACIL. [Suspect]
     Active Substance: FLUOROURACIL
     Dosage: 636 MG,UNK
     Route: 042
     Dates: start: 20171104, end: 20171104
  66. FLUOROURACIL. [Suspect]
     Active Substance: FLUOROURACIL
     Dosage: 3816 MG,UNK
     Route: 042
     Dates: start: 20180405, end: 20180407
  67. FOLINIC ACID [Suspect]
     Active Substance: LEUCOVORIN
     Dosage: 636 MG, UNK
     Route: 042
     Dates: start: 20170427, end: 20170427
  68. FOLINIC ACID [Suspect]
     Active Substance: LEUCOVORIN
     Dosage: 636 MG, UNK
     Route: 042
     Dates: start: 20170511, end: 20170511
  69. BLINDED THERAPY [Suspect]
     Active Substance: INVESTIGATIONAL PRODUCT
     Dosage: 800 MG, UNK
     Route: 042
     Dates: start: 20170427, end: 20170427
  70. BLINDED THERAPY [Suspect]
     Active Substance: INVESTIGATIONAL PRODUCT
     Dosage: 800 MG, UNK
     Route: 042
     Dates: start: 20171101, end: 20171101
  71. BLINDED THERAPY [Suspect]
     Active Substance: INVESTIGATIONAL PRODUCT
     Dosage: 800 MG, UNK
     Route: 042
     Dates: start: 20180322, end: 20180322
  72. MOVICOL [Concomitant]
     Active Substance: POLYETHYLENE GLYCOL 3350\POTASSIUM CHLORIDE\SODIUM BICARBONATE\SODIUM CHLORIDE
     Indication: PRODUCT USED FOR UNKNOWN INDICATION
     Dosage: UNK
     Route: 065
     Dates: start: 2007
  73. CENTRUM A TO ZINC [Concomitant]
     Indication: PRODUCT USED FOR UNKNOWN INDICATION
     Dosage: UNK
     Route: 065
     Dates: start: 20180105
  74. FLUOROURACIL. [Suspect]
     Active Substance: FLUOROURACIL
     Indication: ADENOCARCINOMA GASTRIC
     Dosage: 636 MG, UNK
     Route: 042
     Dates: start: 20170302, end: 20170302
  75. FLUOROURACIL. [Suspect]
     Active Substance: FLUOROURACIL
     Dosage: 636 MG, UNK
     Route: 042
     Dates: start: 20170330, end: 20170330
  76. FLUOROURACIL. [Suspect]
     Active Substance: FLUOROURACIL
     Dosage: 3816 MG, UNK
     Route: 042
     Dates: start: 20170330, end: 20170401
  77. FLUOROURACIL. [Suspect]
     Active Substance: FLUOROURACIL
     Dosage: 3816 MG, UNK
     Route: 042
     Dates: start: 20170511, end: 20170513
  78. FLUOROURACIL. [Suspect]
     Active Substance: FLUOROURACIL
     Dosage: 636 MG,UNK
     Route: 042
     Dates: start: 20170919, end: 20170919
  79. FOLINIC ACID [Suspect]
     Active Substance: LEUCOVORIN
     Dosage: 636 MG, UNK
     Route: 042
     Dates: start: 20170530, end: 20170530
  80. FOLINIC ACID [Suspect]
     Active Substance: LEUCOVORIN
     Dosage: 636 MG, UNK
     Route: 042
     Dates: start: 20170711, end: 20170711
  81. FOLINIC ACID [Suspect]
     Active Substance: LEUCOVORIN
     Dosage: 636 MG,UNK
     Route: 042
     Dates: start: 20171128, end: 20171128
  82. BLINDED THERAPY [Suspect]
     Active Substance: INVESTIGATIONAL PRODUCT
     Indication: ADENOCARCINOMA GASTRIC
     Dosage: 800 MG, UNK
     Route: 042
     Dates: start: 20170330, end: 20170330
  83. BLINDED THERAPY [Suspect]
     Active Substance: INVESTIGATIONAL PRODUCT
     Dosage: 800 MG, UNK
     Route: 042
     Dates: start: 20180208, end: 20180208
  84. BLINDED THERAPY [Suspect]
     Active Substance: INVESTIGATIONAL PRODUCT
     Dosage: 800 MG, UNK
     Route: 042
     Dates: start: 20171017, end: 20171017
  85. BLINDED THERAPY [Suspect]
     Active Substance: INVESTIGATIONAL PRODUCT
     Dosage: 800 MG, UNK
     Route: 042
     Dates: start: 20170919, end: 20170919
  86. DUROGESIC SMAT [Concomitant]
     Active Substance: FENTANYL
     Indication: PRODUCT USED FOR UNKNOWN INDICATION
     Dosage: UNK
     Route: 065
     Dates: start: 20170221
  87. NEUROTRAT B12 [Concomitant]
     Indication: PRODUCT USED FOR UNKNOWN INDICATION
     Dosage: UNK
     Route: 065
     Dates: start: 20180125
  88. XARELTO [Concomitant]
     Active Substance: RIVAROXABAN
     Indication: PRODUCT USED FOR UNKNOWN INDICATION
     Dosage: UNK
     Route: 065
     Dates: start: 20170809
  89. VOLTAREN [Suspect]
     Active Substance: DICLOFENAC SODIUM
     Indication: PRODUCT USED FOR UNKNOWN INDICATION
     Dosage: UNK
     Route: 065
  90. FLUOROURACIL. [Suspect]
     Active Substance: FLUOROURACIL
     Dosage: 636 MG, UNK
     Route: 042
     Dates: start: 20170613, end: 20170613
  91. FLUOROURACIL. [Suspect]
     Active Substance: FLUOROURACIL
     Dosage: 3816 MG, UNK
     Route: 042
     Dates: start: 20170808, end: 20170810
  92. FLUOROURACIL. [Suspect]
     Active Substance: FLUOROURACIL
     Dosage: 636 MG,UNK
     Route: 042
     Dates: start: 20171101, end: 20171101
  93. FLUOROURACIL. [Suspect]
     Active Substance: FLUOROURACIL
     Dosage: 3816 MG,UNK
     Route: 042
     Dates: start: 20171212, end: 20171214
  94. FLUOROURACIL. [Suspect]
     Active Substance: FLUOROURACIL
     Dosage: 3816 MG,UNK
     Route: 042
     Dates: start: 20180125, end: 20180125
  95. FLUOROURACIL. [Suspect]
     Active Substance: FLUOROURACIL
     Dosage: 3816 MG,UNK
     Route: 042
     Dates: start: 20180208, end: 20180210
  96. FLUOROURACIL. [Suspect]
     Active Substance: FLUOROURACIL
     Dosage: 636 MG,UNK
     Route: 042
     Dates: start: 20180222, end: 20180222
  97. FLUOROURACIL. [Suspect]
     Active Substance: FLUOROURACIL
     Dosage: 636 MG,UNK
     Route: 042
     Dates: start: 20180405, end: 20180405
  98. FOLINIC ACID [Suspect]
     Active Substance: LEUCOVORIN
     Dosage: 636 MG,UNK
     Route: 042
     Dates: start: 20171017, end: 20171017
  99. FOLINIC ACID [Suspect]
     Active Substance: LEUCOVORIN
     Dosage: 636 MG,UNK
     Route: 042
     Dates: start: 20171212, end: 20171212
  100. FOLINIC ACID [Suspect]
     Active Substance: LEUCOVORIN
     Dosage: 636 MG,UNK
     Route: 042
     Dates: start: 20180308, end: 20180308
  101. FOLINIC ACID [Suspect]
     Active Substance: LEUCOVORIN
     Dosage: 636 MG,UNK
     Route: 042
     Dates: start: 20180405, end: 20180405
  102. PERFALGAN [Suspect]
     Active Substance: ACETAMINOPHEN
     Indication: PRODUCT USED FOR UNKNOWN INDICATION
     Route: 065
  103. BLINDED THERAPY [Suspect]
     Active Substance: INVESTIGATIONAL PRODUCT
     Dosage: 800 MG, UNK
     Route: 042
     Dates: start: 20170808, end: 20170808
  104. BLINDED THERAPY [Suspect]
     Active Substance: INVESTIGATIONAL PRODUCT
     Dosage: 800 MG, UNK
     Route: 042
     Dates: start: 20171114, end: 20171114
  105. BLINDED THERAPY [Suspect]
     Active Substance: INVESTIGATIONAL PRODUCT
     Dosage: 800 MG, UNK
     Route: 042
     Dates: start: 20171128, end: 20171128
  106. BLINDED THERAPY [Suspect]
     Active Substance: INVESTIGATIONAL PRODUCT
     Dosage: 800 MG, UNK
     Route: 042
     Dates: start: 20180405, end: 20180405
  107. OXALIPLATIN. [Suspect]
     Active Substance: OXALIPLATIN
     Dosage: 135 MG, UNK
     Route: 042
     Dates: start: 20170316, end: 20170316
  108. OXALIPLATIN. [Suspect]
     Active Substance: OXALIPLATIN
     Dosage: 135 MG, UNK
     Route: 042
     Dates: start: 20170413, end: 20170413
  109. OXALIPLATIN. [Suspect]
     Active Substance: OXALIPLATIN
     Dosage: 135 MG, UNK
     Route: 042
     Dates: start: 20170427, end: 20170427
  110. OXALIPLATIN. [Suspect]
     Active Substance: OXALIPLATIN
     Dosage: 135 MG, UNK
     Route: 042
     Dates: start: 20170725, end: 20170725
  111. FLUOROURACIL. [Suspect]
     Active Substance: FLUOROURACIL
     Dosage: 3816 MG, UNK
     Route: 042
     Dates: start: 20170427, end: 20170427
  112. FLUOROURACIL. [Suspect]
     Active Substance: FLUOROURACIL
     Dosage: 636 MG, UNK
     Route: 042
     Dates: start: 20170725, end: 20170725
  113. FLUOROURACIL. [Suspect]
     Active Substance: FLUOROURACIL
     Dosage: 636 MG, UNK
     Route: 042
     Dates: start: 20170808, end: 20170808
  114. FLUOROURACIL. [Suspect]
     Active Substance: FLUOROURACIL
     Dosage: 636 MG,UNK
     Route: 042
     Dates: start: 20171017, end: 20171017
  115. FLUOROURACIL. [Suspect]
     Active Substance: FLUOROURACIL
     Dosage: 3816 MG,UNK
     Route: 042
     Dates: start: 20171017, end: 20171019
  116. FLUOROURACIL. [Suspect]
     Active Substance: FLUOROURACIL
     Dosage: 3816 MG,UNK
     Route: 042
     Dates: start: 20171114, end: 20171116
  117. FLUOROURACIL. [Suspect]
     Active Substance: FLUOROURACIL
     Dosage: 3816 MG,UNK
     Route: 042
     Dates: start: 20171128, end: 20171130
  118. BLINDED THERAPY [Suspect]
     Active Substance: INVESTIGATIONAL PRODUCT
     Dosage: 800 MG, UNK
     Route: 042
     Dates: start: 20170613, end: 20170613
  119. BLINDED THERAPY [Suspect]
     Active Substance: INVESTIGATIONAL PRODUCT
     Dosage: 800 MG, UNK
     Route: 042
     Dates: start: 20170511, end: 20170511

REACTIONS (1)
  - Hip fracture [Recovered/Resolved]

NARRATIVE: CASE EVENT DATE: 20180506
